FAERS Safety Report 25582219 (Version 1)
Quarter: 2025Q3

REPORT INFORMATION
  Report Type: Spontaneous
  Country: AU (occurrence: AU)
  Receive Date: 20250719
  Receipt Date: 20250719
  Transmission Date: 20251021
  Serious: Yes (Other)
  Sender: AMGEN
  Company Number: AU-AMGEN-AUSSP2025136476

PATIENT
  Age: 43 Year
  Sex: Male

DRUGS (2)
  1. PROLIA [Suspect]
     Active Substance: DENOSUMAB
     Indication: Fibrous dysplasia of bone
     Dosage: 60 MILLIGRAM, QMO
     Route: 065
  2. PROLIA [Suspect]
     Active Substance: DENOSUMAB
     Dosage: 60 MILLIGRAM, Q3MO
     Route: 065

REACTIONS (4)
  - Chronic myeloid leukaemia [Unknown]
  - Fibrous dysplasia of bone [Unknown]
  - Hypocalcaemia [Unknown]
  - Off label use [Unknown]
